FAERS Safety Report 4849751-5 (Version None)
Quarter: 2005Q4

REPORT INFORMATION
  Report Type: 
  Country: None (occurrence: None)
  Receive Date: 20051115
  Receipt Date: 20050916
  Transmission Date: 20060501
  Serious: No
  Sender: FDA-Public Use
  Company Number: S05-USA-04352-01

PATIENT
  Age: 95 Year
  Sex: Female

DRUGS (6)
  1. NAMENDA [Suspect]
     Indication: DEMENTIA ALZHEIMER'S TYPE
     Dosage: 5 MG QD PO
     Route: 048
     Dates: start: 20050817, end: 20050823
  2. NAMENDA [Suspect]
     Indication: DEMENTIA ALZHEIMER'S TYPE
     Dosage: 5 MG BID PO
     Route: 048
     Dates: start: 20050824, end: 20050830
  3. NAMENDA [Suspect]
     Indication: DEMENTIA ALZHEIMER'S TYPE
     Dosage: 15 MG QD PO
     Route: 048
     Dates: start: 20050831, end: 20050906
  4. NAMENDA [Suspect]
     Indication: DEMENTIA ALZHEIMER'S TYPE
     Dosage: 10 MG BID PO
     Route: 048
     Dates: start: 20050907, end: 20050915
  5. ARICEPT [Concomitant]
  6. PROZAC [Concomitant]

REACTIONS (4)
  - CONFUSIONAL STATE [None]
  - FATIGUE [None]
  - FEELING ABNORMAL [None]
  - HALLUCINATION, VISUAL [None]
